FAERS Safety Report 8071277-9 (Version None)
Quarter: 2012Q1

REPORT INFORMATION
  Report Type: 
  Country: None (occurrence: None)
  Receive Date: 20120125
  Receipt Date: 20120123
  Transmission Date: 20120608
  Serious: Yes (Hospitalization)
  Sender: FDA-Public Use
  Company Number: CH-JNJFOC-20111112239

PATIENT
  Age: 29 Year
  Sex: Male

DRUGS (5)
  1. XEPLION [Suspect]
     Route: 030
     Dates: start: 20111118
  2. XEPLION [Suspect]
     Route: 030
     Dates: start: 20111219
  3. XEPLION [Suspect]
     Route: 030
     Dates: start: 20120101
  4. PROMAZINE HYDROCHLORIDE [Concomitant]
     Route: 048
  5. XEPLION [Suspect]
     Indication: SCHIZOPHRENIA
     Route: 030
     Dates: start: 20111111

REACTIONS (2)
  - SCHIZOPHRENIA [None]
  - SEDATION [None]
